FAERS Safety Report 8065444-8 (Version None)
Quarter: 2012Q1

REPORT INFORMATION
  Report Type: 
  Country: None (occurrence: None)
  Receive Date: 20120117
  Receipt Date: 20120105
  Transmission Date: 20120608
  Serious: Yes (Disabling)
  Sender: FDA-Public Use
  Company Number: 7104543

PATIENT
  Age: 43 Year
  Sex: Male

DRUGS (5)
  1. LEVOTHYROXINE SODIUM [Suspect]
     Indication: PRODUCT USED FOR UNKNOWN INDICATION
     Dosage: 75 MCG ORAL
     Route: 048
     Dates: start: 20101201, end: 20110301
  2. DESLORATADINE [Concomitant]
  3. PIVALONE COMPOSITUM (TIXOCORTOL PIVALATE) [Concomitant]
  4. INSULIN NOVORAPID (INSULIN ASPART) [Concomitant]
  5. INSULIN LEVEMIR (INSULIN DETEMIR) [Concomitant]

REACTIONS (3)
  - PARANASAL SINUS DISCOMFORT [None]
  - NASAL CONGESTION [None]
  - EYE INFLAMMATION [None]
